FAERS Safety Report 15343700 (Version 1)
Quarter: 2018Q3

REPORT INFORMATION
  Report Type: Other
  Country: GB (occurrence: GB)
  Receive Date: 20180903
  Receipt Date: 20180903
  Transmission Date: 20181010
  Serious: Yes (Other)
  Sender: FDA-Public Use
  Company Number: GB-LUPIN PHARMACEUTICALS INC.-2018-06088

PATIENT

DRUGS (4)
  1. FLUOXETINE [Concomitant]
     Active Substance: FLUOXETINE HYDROCHLORIDE
     Indication: PRODUCT USED FOR UNKNOWN INDICATION
     Dosage: 1 DF, QD (IN THE MORNING)
     Route: 065
     Dates: start: 20180807
  2. SERTRALINE HYDROCHLORIDE TABLETS [Suspect]
     Active Substance: SERTRALINE HYDROCHLORIDE
     Indication: PRODUCT USED FOR UNKNOWN INDICATION
     Dosage: 50 MG, QD
     Route: 065
     Dates: start: 20180607
  3. ZOPICLONE [Concomitant]
     Active Substance: ZOPICLONE
     Indication: PRODUCT USED FOR UNKNOWN INDICATION
     Dosage: (TAKE ONE TO TWO AT NIGHT)
     Route: 065
     Dates: start: 20180731
  4. MIRTAZAPINE. [Concomitant]
     Active Substance: MIRTAZAPINE
     Indication: DEPRESSED MOOD
     Dosage: 1 DF, QD (AT NIGHT TO HELP PREVENT LOW MOOD)
     Route: 065
     Dates: start: 20180524, end: 20180621

REACTIONS (3)
  - Hyperhidrosis [Recovered/Resolved]
  - Palpitations [Unknown]
  - Abdominal distension [Unknown]

NARRATIVE: CASE EVENT DATE: 20180809
